FAERS Safety Report 23604796 (Version 2)
Quarter: 2024Q2

REPORT INFORMATION
  Report Type: Spontaneous
  Country: CN (occurrence: CN)
  Receive Date: 20240307
  Receipt Date: 20240508
  Transmission Date: 20240716
  Serious: Yes (Other)
  Sender: FDA-Public Use
  Company Number: None

PATIENT
  Age: 54 Year
  Sex: Female

DRUGS (13)
  1. PREDNISOLONE [Suspect]
     Active Substance: PREDNISOLONE
     Indication: Angioimmunoblastic T-cell lymphoma stage IV
     Dosage: UNK (CHOP REGIMEN), PREDNISONE
     Route: 065
     Dates: start: 202111
  2. PREDNISOLONE [Suspect]
     Active Substance: PREDNISOLONE
     Indication: Metastases to lymph nodes
     Dosage: 100 MILLIGRAM, QD (PART OF CMOP REGIMEN; RECEIVED ON DAYS 1 TO 5, 5 CYCLES), PREDNISOLONE
     Route: 065
     Dates: start: 202202, end: 202207
  3. PREDNISOLONE [Suspect]
     Active Substance: PREDNISOLONE
     Indication: Metastases to skin
  4. DOXORUBICIN [Suspect]
     Active Substance: DOXORUBICIN
     Indication: Angioimmunoblastic T-cell lymphoma stage IV
     Dosage: UNK (CHOP REGIMEN)
     Route: 065
     Dates: start: 202111
  5. CYCLOPHOSPHAMIDE [Suspect]
     Active Substance: CYCLOPHOSPHAMIDE
     Indication: Metastases to lymph nodes
     Dosage: UNK (CHOP REGIMEN)
     Route: 065
     Dates: start: 202111
  6. CYCLOPHOSPHAMIDE [Suspect]
     Active Substance: CYCLOPHOSPHAMIDE
     Indication: Metastases to skin
     Dosage: 750 MILLIGRAM/SQ. METER, CYCLICAL, (PART OF CMOP REGIMEN; RECEIVED ON DAY 1, 5 CYCLES)
     Route: 065
     Dates: start: 202202, end: 202207
  7. CYCLOPHOSPHAMIDE [Suspect]
     Active Substance: CYCLOPHOSPHAMIDE
     Indication: Angioimmunoblastic T-cell lymphoma stage IV
  8. MITOXANTRONE HYDROCHLORIDE [Suspect]
     Active Substance: MITOXANTRONE HYDROCHLORIDE
     Indication: Metastases to skin
     Dosage: 20 MILLIGRAM/SQ. METER, CYCLICAL (PART OF CMOP REGIMEN; RECEIVED ON DAY 1, 5 CYCLES), LIPOSOMAL
     Route: 065
     Dates: start: 202202
  9. MITOXANTRONE HYDROCHLORIDE [Suspect]
     Active Substance: MITOXANTRONE HYDROCHLORIDE
     Indication: Angioimmunoblastic T-cell lymphoma stage IV
  10. MITOXANTRONE HYDROCHLORIDE [Suspect]
     Active Substance: MITOXANTRONE HYDROCHLORIDE
     Indication: Metastases to lymph nodes
  11. VINCRISTINE [Suspect]
     Active Substance: VINCRISTINE
     Indication: Angioimmunoblastic T-cell lymphoma stage IV
     Dosage: UNK (CHOP REGIMEN)
     Route: 065
     Dates: start: 202111
  12. VINCRISTINE [Suspect]
     Active Substance: VINCRISTINE
     Indication: Metastases to lymph nodes
     Dosage: 1.4 MILLIGRAM/SQ. METER, CYCLICAL (~PART OF CMOP REGIMEN; RECEIVED ON DAY 1, 5 CYCLES), LIPOSOMAL
     Route: 065
     Dates: start: 202202, end: 202207
  13. VINCRISTINE [Suspect]
     Active Substance: VINCRISTINE
     Indication: Metastases to skin

REACTIONS (4)
  - Therapy partial responder [Unknown]
  - Haematotoxicity [Unknown]
  - Skin hyperpigmentation [Recovered/Resolved]
  - Nausea [Unknown]

NARRATIVE: CASE EVENT DATE: 20220101
